FAERS Safety Report 25390437 (Version 1)
Quarter: 2025Q2

REPORT INFORMATION
  Report Type: Spontaneous
  Country: US (occurrence: US)
  Receive Date: 20250603
  Receipt Date: 20250603
  Transmission Date: 20250716
  Serious: Yes (Other)
  Sender: PFIZER
  Company Number: US-PFIZER INC-PV202500065485

PATIENT
  Sex: Female

DRUGS (1)
  1. PROPOFOL [Suspect]
     Active Substance: PROPOFOL
     Indication: Dental operation
     Dates: start: 2023

REACTIONS (4)
  - CSF test abnormal [Unknown]
  - Respiratory disorder [Unknown]
  - Injury [Unknown]
  - Expired product administered [Unknown]
